FAERS Safety Report 20722329 (Version 1)
Quarter: 2022Q2

REPORT INFORMATION
  Report Type: Spontaneous
  Country: US (occurrence: US)
  Receive Date: 20220418
  Receipt Date: 20220418
  Transmission Date: 20220721
  Serious: No
  Sender: FDA-Public Use
  Company Number: US-BEH-2022144370

PATIENT
  Sex: Female

DRUGS (48)
  1. HIZENTRA [Suspect]
     Active Substance: HUMAN IMMUNOGLOBULIN G
     Indication: Immunodeficiency common variable
     Dosage: 14 GRAM, QW
     Route: 058
     Dates: start: 20200221
  2. ALBUTEROL SULFATE [Concomitant]
     Active Substance: ALBUTEROL SULFATE
  3. ALBUTEROL SULFATE [Concomitant]
     Active Substance: ALBUTEROL SULFATE
  4. ALENDRONATE [Concomitant]
     Active Substance: ALENDRONATE SODIUM
  5. ALENDRONATE [Concomitant]
     Active Substance: ALENDRONATE SODIUM
  6. ATORVASTATIN [Concomitant]
     Active Substance: ATORVASTATIN
  7. ATORVASTATIN [Concomitant]
     Active Substance: ATORVASTATIN
  8. CIMETIDINE [Concomitant]
     Active Substance: CIMETIDINE
  9. CYCLOBENZAPRINE [Concomitant]
     Active Substance: CYCLOBENZAPRINE
  10. DICLOFENAC [Concomitant]
     Active Substance: DICLOFENAC
  11. DOXAZOSIN [Concomitant]
     Active Substance: DOXAZOSIN MESYLATE
  12. DULOXETINE HYDROCHLORIDE [Concomitant]
     Active Substance: DULOXETINE HYDROCHLORIDE
  13. DULOXETINE HYDROCHLORIDE [Concomitant]
     Active Substance: DULOXETINE HYDROCHLORIDE
  14. EPINEPHRINE [Concomitant]
     Active Substance: EPINEPHRINE
  15. EPINEPHRINE [Concomitant]
     Active Substance: EPINEPHRINE
  16. FLUTICASONE PROPIONATE [Concomitant]
     Active Substance: FLUTICASONE PROPIONATE
  17. GABAPENTIN AL [Concomitant]
  18. GABAPENTIN AL [Concomitant]
  19. HYDROCORTISONE ACETATE [Concomitant]
     Active Substance: HYDROCORTISONE ACETATE
  20. HYDROXYZINE HYDROCHLORIDE [Concomitant]
     Active Substance: HYDROXYZINE HYDROCHLORIDE
  21. IBUPROFEN SODIUM [Concomitant]
     Active Substance: IBUPROFEN SODIUM
  22. IBUPROFEN SODIUM [Concomitant]
     Active Substance: IBUPROFEN SODIUM
  23. KEPPRA [Concomitant]
     Active Substance: LEVETIRACETAM
  24. KLOR-CON M10 [Concomitant]
     Active Substance: POTASSIUM CHLORIDE
  25. LASIX [Concomitant]
     Active Substance: FUROSEMIDE
  26. LATUDA [Concomitant]
     Active Substance: LURASIDONE HYDROCHLORIDE
  27. LATUDA [Concomitant]
     Active Substance: LURASIDONE HYDROCHLORIDE
  28. LEVETIRACETAM [Concomitant]
     Active Substance: LEVETIRACETAM
  29. LORATADINE [Concomitant]
     Active Substance: LORATADINE
  30. MEDROXYPROGESTERONE ACETATE [Concomitant]
     Active Substance: MEDROXYPROGESTERONE ACETATE
  31. METHOCARBAMOL [Concomitant]
     Active Substance: METHOCARBAMOL
  32. MUCINEX [Concomitant]
     Active Substance: GUAIFENESIN
  33. MINERALS\VITAMINS [Concomitant]
     Active Substance: MINERALS\VITAMINS
  34. NAPROXEN [Concomitant]
     Active Substance: NAPROXEN
  35. OMEPRAZOLE [Concomitant]
     Active Substance: OMEPRAZOLE
  36. CALCIUM [Concomitant]
     Active Substance: CALCIUM
  37. POLYETHYLENE GLYCOL 3350 [Concomitant]
     Active Substance: POLYETHYLENE GLYCOL 3350
  38. POTASSIUM CHLORIDE [Concomitant]
     Active Substance: POTASSIUM CHLORIDE
  39. PRAZOSIN HYDROCHLORIDE [Concomitant]
     Active Substance: PRAZOSIN HYDROCHLORIDE
  40. PRAZOSIN HYDROCHLORIDE [Concomitant]
     Active Substance: PRAZOSIN HYDROCHLORIDE
  41. PROMETHAZINE HYDROCHLORIDE [Concomitant]
     Active Substance: PROMETHAZINE HYDROCHLORIDE
  42. PROMETHAZINE DM [Concomitant]
     Active Substance: DEXTROMETHORPHAN HYDROBROMIDE\PROMETHAZINE HYDROCHLORIDE
  43. QVAR [Concomitant]
     Active Substance: BECLOMETHASONE DIPROPIONATE
  44. RANITIDINE [Concomitant]
     Active Substance: RANITIDINE
  45. STOOL SOFTENER (DOCUSATE) [Concomitant]
     Active Substance: DOCUSATE
  46. SUMATRIPTAN [Concomitant]
     Active Substance: SUMATRIPTAN
  47. SUPREP BOWEL PREP [Concomitant]
     Active Substance: MAGNESIUM SULFATE\POTASSIUM SULFATE\SODIUM SULFATE
  48. TRAZODONE [Concomitant]
     Active Substance: TRAZODONE HYDROCHLORIDE

REACTIONS (2)
  - Injection site urticaria [Not Recovered/Not Resolved]
  - Injection site bruising [Not Recovered/Not Resolved]
